FAERS Safety Report 9371725 (Version 1)
Quarter: 2013Q2

REPORT INFORMATION
  Report Type: Spontaneous
  Country: GR (occurrence: GR)
  Receive Date: 20130627
  Receipt Date: 20130627
  Transmission Date: 20140414
  Serious: Yes (Other)
  Sender: FDA-Public Use
  Company Number: GR-SANOFI-AVENTIS-2013SA064596

PATIENT
  Age: 13 Year
  Sex: Female

DRUGS (2)
  1. DESMOPRESSIN ACETATE [Suspect]
     Indication: BLEEDING TIME PROLONGED
     Route: 065
  2. DESMOPRESSIN ACETATE [Suspect]
     Indication: BLEEDING TIME PROLONGED
     Dosage: 300 NG/KG
     Route: 042

REACTIONS (1)
  - Complications of transplanted kidney [Unknown]
